FAERS Safety Report 19887312 (Version 2)
Quarter: 2022Q3

REPORT INFORMATION
  Report Type: Spontaneous
  Country: US (occurrence: US)
  Receive Date: 20210928
  Receipt Date: 20220718
  Transmission Date: 20221027
  Serious: No
  Sender: FDA-Public Use
  Company Number: US-ORGANON-O2109USA001016

PATIENT
  Age: 16 Year
  Sex: Female
  Weight: 61.23 kg

DRUGS (3)
  1. NEXPLANON [Suspect]
     Active Substance: ETONOGESTREL
     Indication: Contraception
     Dosage: 1 DOSAGE FORM, (1 IMPLANT) FOR EVERY 3 YEARS
     Route: 059
     Dates: start: 20210823
  2. NEXPLANON [Suspect]
     Active Substance: ETONOGESTREL
     Dosage: 1 DOSAGE FORM, (1 IMPLANT) FOR EVERY 3 YEARS
     Route: 059
  3. CHLORHEXIDINE [Suspect]
     Active Substance: CHLORHEXIDINE
     Indication: Infection prophylaxis
     Dosage: UNK
     Dates: start: 20210823, end: 20210823

REACTIONS (3)
  - Implant site pruritus [Not Recovered/Not Resolved]
  - Implant site erythema [Not Recovered/Not Resolved]
  - Implant site rash [Recovered/Resolved]

NARRATIVE: CASE EVENT DATE: 20210901
